FAERS Safety Report 10698044 (Version 1)
Quarter: 2015Q1

REPORT INFORMATION
  Report Type: Report from Study
  Country: PE (occurrence: None)
  Receive Date: 20150106
  Receipt Date: 20150106
  Transmission Date: 20150721
  Serious: Yes (Death)
  Sender: FDA-Public Use
  Company Number: 8003749D

PATIENT
  Age: 64 Year
  Sex: Female

DRUGS (1)
  1. EUTIROX ( LEVOTHYROXINE SODIUM) (LEVOTHYROXINE SODIUM) [Suspect]
     Active Substance: LEVOTHYROXINE SODIUM
     Indication: PRODUCT USED FOR UNKNOWN INDICATION
     Dosage: 125 MCG, 1 IN 1 D
     Dates: start: 200308, end: 201412

REACTIONS (1)
  - Death [None]
